FAERS Safety Report 21716036 (Version 1)
Quarter: 2022Q4

REPORT INFORMATION
  Report Type: Spontaneous
  Country: US (occurrence: None)
  Receive Date: 20221209
  Receipt Date: 20221209
  Transmission Date: 20230113
  Serious: No
  Sender: FDA-Public Use
  Company Number: None

PATIENT
  Sex: Female

DRUGS (20)
  1. GEMCITABINE [Suspect]
     Active Substance: GEMCITABINE
     Indication: Cholangiocarcinoma
  2. ASPIRIN [Concomitant]
     Active Substance: ASPIRIN
  3. CRANBERRY [Concomitant]
     Active Substance: CRANBERRY
  4. FENTANYL [Concomitant]
     Active Substance: FENTANYL
  5. GABAPENTIN [Concomitant]
     Active Substance: GABAPENTIN
  6. ISOSORBIDE MONONITRATE [Concomitant]
     Active Substance: ISOSORBIDE MONONITRATE
  7. KLOR-CON [Concomitant]
     Active Substance: POTASSIUM CHLORIDE
  8. LANSOPRAZOLE [Concomitant]
     Active Substance: LANSOPRAZOLE
  9. LEVETIRACETAM [Concomitant]
     Active Substance: LEVETIRACETAM
  10. LIPITOR [Concomitant]
     Active Substance: ATORVASTATIN CALCIUM
  11. MAGNESIUM OXIDE [Concomitant]
     Active Substance: MAGNESIUM OXIDE
  12. METFORMIN [Concomitant]
     Active Substance: METFORMIN HYDROCHLORIDE
  13. METOPROLOL [Concomitant]
     Active Substance: METOPROLOL
  14. NITROFURANTOIN [Concomitant]
     Active Substance: NITROFURANTOIN
  15. NORCO [Concomitant]
     Active Substance: ACETAMINOPHEN\HYDROCODONE BITARTRATE
  16. ONDANSETRON [Concomitant]
     Active Substance: ONDANSETRON
  17. SERTRALINE [Concomitant]
     Active Substance: SERTRALINE HYDROCHLORIDE
  18. SYSTANE BALANCE [Concomitant]
     Active Substance: PROPYLENE GLYCOL
  19. VITAMIN B12 [Concomitant]
     Active Substance: CYANOCOBALAMIN
  20. VITAMIN D2 [Concomitant]
     Active Substance: ERGOCALCIFEROL

REACTIONS (2)
  - White blood cell count decreased [None]
  - Therapy interrupted [None]
